FAERS Safety Report 7345713-7 (Version None)
Quarter: 2011Q1

REPORT INFORMATION
  Report Type: 
  Country: None (occurrence: None)
  Receive Date: 20110310
  Receipt Date: 20110303
  Transmission Date: 20110831
  Serious: Yes (Death)
  Sender: FDA-Public Use
  Company Number: JP-BRISTOL-MYERS SQUIBB COMPANY-15587686

PATIENT
  Age: 86 Year
  Sex: Female

DRUGS (4)
  1. ANPLAG [Concomitant]
     Route: 048
     Dates: end: 20110301
  2. MAXIPIME [Suspect]
     Indication: PNEUMONIA
     Route: 041
     Dates: start: 20110218, end: 20110221
  3. FLOMOX [Suspect]
     Route: 048
     Dates: start: 20110215, end: 20110220
  4. LAC-B [Concomitant]
     Route: 048
     Dates: start: 20110223, end: 20110301

REACTIONS (1)
  - HEPATITIS FULMINANT [None]
